FAERS Safety Report 6356685-6 (Version None)
Quarter: 2009Q3

REPORT INFORMATION
  Report Type: 
  Country: None (occurrence: None)
  Receive Date: 20090915
  Receipt Date: 20090908
  Transmission Date: 20100115
  Serious: Yes (Other)
  Sender: FDA-Public Use
  Company Number: JP-JNJFOC-20090904369

PATIENT
  Age: 2 Year
  Sex: Male

DRUGS (4)
  1. TOPINA [Suspect]
     Indication: PARTIAL SEIZURES
     Route: 048
     Dates: start: 20090621
  2. PHENOBARBITAL TAB [Concomitant]
     Route: 048
  3. EXCEGRAN [Concomitant]
     Route: 048
  4. RIVOTRIL [Concomitant]
     Route: 048

REACTIONS (1)
  - CARDIAC FAILURE [None]
